FAERS Safety Report 22035565 (Version 1)
Quarter: 2023Q1

REPORT INFORMATION
  Report Type: Spontaneous
  Country: NL (occurrence: NL)
  Receive Date: 20230224
  Receipt Date: 20230224
  Transmission Date: 20230417
  Serious: Yes (Life-Threatening, Hospitalization, Other)
  Sender: FDA-Public Use
  Company Number: NL-BRISTOL-MYERS SQUIBB COMPANY-2023-025134

PATIENT
  Age: 74 Year
  Sex: Male

DRUGS (1)
  1. NIVOLUMAB [Suspect]
     Active Substance: NIVOLUMAB
     Indication: Malignant melanoma

REACTIONS (6)
  - Respiratory failure [Unknown]
  - Myositis [Recovering/Resolving]
  - Myocarditis [Unknown]
  - Thyroiditis [Unknown]
  - Hepatitis [Unknown]
  - Diaphragmatic paralysis [Not Recovered/Not Resolved]
